FAERS Safety Report 12649249 (Version 1)
Quarter: 2016Q3

REPORT INFORMATION
  Report Type: Report from Study
  Country: FR (occurrence: FR)
  Receive Date: 20160812
  Receipt Date: 20160812
  Transmission Date: 20161109
  Serious: Yes (Hospitalization)
  Sender: FDA-Public Use
  Company Number: FR-ABBVIE-16P-056-1700250-00

PATIENT
  Age: 35 Year
  Sex: Male
  Weight: 64 kg

DRUGS (2)
  1. IMUREL [Concomitant]
     Active Substance: AZATHIOPRINE SODIUM
     Indication: CROHN^S DISEASE
     Route: 048
     Dates: start: 20140513
  2. HUMIRA [Suspect]
     Active Substance: ADALIMUMAB
     Indication: CROHN^S DISEASE
     Route: 058
     Dates: start: 20140210, end: 20140324

REACTIONS (4)
  - Decreased appetite [Recovered/Resolved with Sequelae]
  - Gastrointestinal fistula [Recovered/Resolved with Sequelae]
  - Abdominal pain [Recovered/Resolved with Sequelae]
  - Abscess [Recovered/Resolved with Sequelae]

NARRATIVE: CASE EVENT DATE: 20140416
